FAERS Safety Report 5374555-7 (Version None)
Quarter: 2007Q2

REPORT INFORMATION
  Report Type: 
  Country: None (occurrence: None)
  Receive Date: 20070629
  Receipt Date: 20070620
  Transmission Date: 20071010
  Serious: Yes (Other)
  Sender: FDA-Public Use
  Company Number: US-AMGEN-US230427

PATIENT
  Age: 3 Week
  Sex: Male

DRUGS (1)
  1. EPOGEN [Suspect]
     Indication: PREMATURE BABY

REACTIONS (1)
  - BLOOD ALKALINE PHOSPHATASE INCREASED [None]
